FAERS Safety Report 19904790 (Version 1)
Quarter: 2021Q3

REPORT INFORMATION
  Report Type: Spontaneous
  Country: FI (occurrence: FI)
  Receive Date: 20210930
  Receipt Date: 20210930
  Transmission Date: 20211014
  Serious: Yes (Other)
  Sender: FDA-Public Use
  Company Number: FI-TAKEDA-2021TUS058592

PATIENT
  Age: 58 Year
  Sex: Male

DRUGS (4)
  1. ACETYLSALICYLIC ACID [Concomitant]
     Active Substance: ASPIRIN
     Dosage: UNK
     Route: 065
  2. HUMAN NORMAL IMMUNOGLOBULIN [Suspect]
     Active Substance: HUMAN IMMUNOGLOBULIN G
     Indication: IMMUNE THROMBOCYTOPENIA
     Dosage: 1000 MILLIGRAM/KILOGRAM, QD
     Route: 042
  3. DANAPAROID [Concomitant]
     Active Substance: DANAPAROID
     Dosage: UNK
     Route: 065
  4. TICAGRELOR. [Concomitant]
     Active Substance: TICAGRELOR
     Dosage: UNK
     Route: 065

REACTIONS (2)
  - Portal vein thrombosis [Unknown]
  - Off label use [Unknown]
